FAERS Safety Report 7210117-4 (Version None)
Quarter: 2011Q1

REPORT INFORMATION
  Report Type: 
  Country: None (occurrence: None)
  Receive Date: 20110105
  Receipt Date: 20101222
  Transmission Date: 20110831
  Serious: Yes (Other)
  Sender: FDA-Public Use
  Company Number: CH-MERCK-1101USA00001

PATIENT
  Age: 34 Year
  Sex: Female

DRUGS (4)
  1. NOPIL [Suspect]
     Indication: URINARY TRACT INFECTION
     Route: 042
     Dates: start: 20100106, end: 20100113
  2. CLOTRIMAZOLE [Suspect]
     Route: 065
     Dates: start: 20100113, end: 20100123
  3. MONURIL [Suspect]
     Indication: URINARY TRACT INFECTION
     Route: 048
     Dates: start: 20100113, end: 20100113
  4. NOROXIN [Suspect]
     Indication: URINARY TRACT INFECTION
     Route: 048
     Dates: start: 20100120, end: 20100123

REACTIONS (2)
  - GESTATIONAL HYPERTENSION [None]
  - DRUG EXPOSURE DURING PREGNANCY [None]
